FAERS Safety Report 6238832-X (Version None)
Quarter: 2009Q2

REPORT INFORMATION
  Report Type: 
  Country: None (occurrence: None)
  Receive Date: 20090617
  Receipt Date: 20090617
  Transmission Date: 20091009
  Serious: Yes (Life-Threatening, Hospitalization)
  Sender: FDA-Public Use
  Company Number: None

PATIENT
  Age: 62 Year
  Sex: Female
  Weight: 49.941 kg

DRUGS (2)
  1. ATORVASTATIN CALCIUM [Suspect]
     Indication: CORONARY ARTERY BYPASS
     Dosage: 80MG Q DAILY PO
     Route: 048
     Dates: start: 20090201, end: 20090531
  2. ATORVASTATIN CALCIUM [Suspect]
     Indication: CORONARY ARTERY DISEASE
     Dosage: 80MG Q DAILY PO
     Route: 048
     Dates: start: 20090201, end: 20090531

REACTIONS (3)
  - INTERNATIONAL NORMALISED RATIO INCREASED [None]
  - LIVER INJURY [None]
  - RHABDOMYOLYSIS [None]
